FAERS Safety Report 6483775-X (Version None)
Quarter: 2009Q4

REPORT INFORMATION
  Report Type: 
  Country: None (occurrence: None)
  Receive Date: 20091209
  Receipt Date: 20091130
  Transmission Date: 20100525
  Serious: Yes (Disabling)
  Sender: FDA-Public Use
  Company Number: NZ-ASTRAZENECA-2009SE29246

PATIENT
  Age: 55 Year
  Sex: Female

DRUGS (2)
  1. FELODIPINE [Suspect]
     Route: 048
  2. SIMVASTATIN [Suspect]

REACTIONS (2)
  - NEUROPATHY PERIPHERAL [None]
  - PARAESTHESIA [None]
